FAERS Safety Report 18629854 (Version 1)
Quarter: 2020Q4

REPORT INFORMATION
  Report Type: Spontaneous
  Country: GB (occurrence: GB)
  Receive Date: 20201217
  Receipt Date: 20201217
  Transmission Date: 20210114
  Serious: Yes (Hospitalization, Other)
  Sender: FDA-Public Use
  Company Number: GB-MYLANLABS-2020M1083466

PATIENT
  Age: 80 Year
  Sex: Male

DRUGS (1)
  1. VORICONAZOLE. [Suspect]
     Active Substance: VORICONAZOLE
     Indication: BRONCHOPULMONARY ASPERGILLOSIS
     Dosage: DURATION OF THERAPY 2 YEARS AND 11 MONTHS

REACTIONS (3)
  - Squamous cell carcinoma of skin [Recovered/Resolved]
  - Metastatic lymphoma [Recovered/Resolved]
  - Photosensitivity reaction [Recovering/Resolving]
